FAERS Safety Report 7280926-4 (Version None)
Quarter: 2010Q4

REPORT INFORMATION
  Report Type: 
  Country: None (occurrence: None)
  Receive Date: 20101221
  Receipt Date: 20091120
  Transmission Date: 20110411
  Serious: Yes (Life-Threatening, Hospitalization, Other)
  Sender: FDA-Public Use
  Company Number: WAES 0911USA04182

PATIENT
  Age: 73 Year
  Sex: Female
  Weight: 59.4212 kg

DRUGS (9)
  1. JANUVIA [Suspect]
     Indication: DIABETES MELLITUS
     Dosage: 100 MG/DAILY/PO
     Route: 048
  2. ACIPHEX [Concomitant]
  3. BENICAR HCT [Concomitant]
  4. CLIMARA [Concomitant]
  5. FLOVENT [Concomitant]
  6. TRICOR [Concomitant]
  7. GABAPENTIN [Concomitant]
  8. METFORMIN HCL [Concomitant]
  9. RANITIDINE [Concomitant]

REACTIONS (1)
  - PANCREATITIS ACUTE [None]
